FAERS Safety Report 15010009 (Version 3)
Quarter: 2019Q2

REPORT INFORMATION
  Report Type: Spontaneous
  Country: US (occurrence: US)
  Receive Date: 20180614
  Receipt Date: 20190523
  Transmission Date: 20190711
  Serious: No
  Sender: FDA-Public Use
  Company Number: US-PFIZER INC-2017492597

PATIENT
  Age: 14 Year
  Sex: Male

DRUGS (1)
  1. XALKORI [Suspect]
     Active Substance: CRIZOTINIB
     Indication: NEOPLASM
     Dosage: 250 MG, 2X/DAY
     Route: 048
     Dates: start: 20180209

REACTIONS (2)
  - Alopecia [Unknown]
  - Weight decreased [Unknown]

NARRATIVE: CASE EVENT DATE: 20180608
